FAERS Safety Report 7301273-8 (Version None)
Quarter: 2011Q1

REPORT INFORMATION
  Report Type: 
  Country: None (occurrence: None)
  Receive Date: 20110112
  Receipt Date: 20091103
  Transmission Date: 20110831
  Serious: Yes (Other)
  Sender: FDA-Public Use
  Company Number: THYM-1001220

PATIENT
  Age: 53 Year
  Sex: Male
  Weight: 58.2 kg

DRUGS (28)
  1. FOLIC ACID [Concomitant]
  2. VICODIN [Concomitant]
  3. METOPROLOL SUCCINATE [Concomitant]
  4. THYMOGLOBULIN [Suspect]
  5. EPOGEN [Concomitant]
  6. ASPIRIN [Concomitant]
  7. NICOTINE [Concomitant]
  8. TACROLIMUS [Concomitant]
  9. TAMSULOSIN HCL [Concomitant]
  10. NALOXONE [Concomitant]
  11. PAROXETINE HCL [Concomitant]
  12. FUROSEMIDE [Concomitant]
  13. NYSTATIN [Concomitant]
  14. MULTIVITAMIN [Concomitant]
  15. IRON SUCROSE (SACCHARATED IRON OXIDE) [Concomitant]
  16. KETOCONAZOLE [Concomitant]
  17. LEVOTHYROXINE SODIUM [Concomitant]
  18. CINACALCET HYDROCHLORIDE [Concomitant]
  19. MYCOPHENOLATE MOFETIL [Concomitant]
  20. BACTRIM [Concomitant]
  21. VALGANCICLOVIR HCL [Concomitant]
  22. METHYLPREDNISOLONE [Concomitant]
  23. THYMOGLOBULIN [Suspect]
     Indication: PROPHYLAXIS AGAINST TRANSPLANT REJECTION
     Dosage: 125 MG, ONCE, INTRAVENOUS
     Route: 042
     Dates: start: 20090825, end: 20090825
  24. ACETAMINOPHEN [Concomitant]
  25. BISACODYL (BISACODYL) [Concomitant]
  26. DOCUSATE SODIUM (DOCUSATE SODIUM) [Concomitant]
  27. ONDANSETRON [Concomitant]
  28. SENNA LAX (SENNOSIDE A+B) [Concomitant]

REACTIONS (1)
  - THROMBOCYTOPENIA [None]
